FAERS Safety Report 18363040 (Version 2)
Quarter: 2020Q4

REPORT INFORMATION
  Report Type: Spontaneous
  Country: US (occurrence: US)
  Receive Date: 20201008
  Receipt Date: 20201123
  Transmission Date: 20210114
  Serious: Yes (Hospitalization, Other)
  Sender: FDA-Public Use
  Company Number: US-ALKERMES INC.-ALK-2020-004361

PATIENT
  Sex: Female
  Weight: 115.65 kg

DRUGS (1)
  1. VIVITROL [Suspect]
     Active Substance: NALTREXONE
     Indication: DRUG DEPENDENCE
     Dosage: 380 MILLIGRAM, QMO
     Route: 030
     Dates: start: 20180507, end: 20180507

REACTIONS (8)
  - Injection site erythema [Unknown]
  - Injection site cellulitis [Unknown]
  - Injection site reaction [Unknown]
  - Injection site pain [Unknown]
  - Injection site abscess [Unknown]
  - Injection site mass [Unknown]
  - Injection site injury [Unknown]
  - Obesity [Not Recovered/Not Resolved]

NARRATIVE: CASE EVENT DATE: 2018
